FAERS Safety Report 19889606 (Version 1)
Quarter: 2021Q3

REPORT INFORMATION
  Report Type: Spontaneous
  Country: US (occurrence: US)
  Receive Date: 20210928
  Receipt Date: 20210928
  Transmission Date: 20211014
  Serious: Yes (Hospitalization, Other)
  Sender: FDA-Public Use
  Company Number: US-MYLANLABS-2021M1065862

PATIENT
  Age: 55 Year
  Sex: Male

DRUGS (18)
  1. OXYCODONE [Suspect]
     Active Substance: OXYCODONE
     Indication: CANCER PAIN
     Dosage: 25 MILLIGRAM
     Route: 048
  2. HYDROMORPHONE [Suspect]
     Active Substance: HYDROMORPHONE
     Indication: ANALGESIC INTERVENTION SUPPORTIVE THERAPY
     Dosage: 5 MILLIGRAM
     Route: 042
  3. KETOROLAC [Suspect]
     Active Substance: KETOROLAC TROMETHAMINE
     Indication: ANALGESIC INTERVENTION SUPPORTIVE THERAPY
  4. GABAPENTIN. [Concomitant]
     Active Substance: GABAPENTIN
     Indication: PRODUCT USED FOR UNKNOWN INDICATION
     Dosage: UNK
     Route: 065
  5. LIPITOR [Concomitant]
     Active Substance: ATORVASTATIN CALCIUM
     Indication: DYSLIPIDAEMIA
     Dosage: UNK
     Route: 065
  6. DULCOLAX (BISACODYL) [Concomitant]
     Active Substance: BISACODYL
     Indication: PRODUCT USED FOR UNKNOWN INDICATION
     Dosage: UNK
     Route: 065
  7. KETOROLAC [Suspect]
     Active Substance: KETOROLAC TROMETHAMINE
     Indication: CANCER PAIN
     Dosage: UNK
     Route: 065
  8. OXYCODONE [Suspect]
     Active Substance: OXYCODONE
     Indication: ANALGESIC INTERVENTION SUPPORTIVE THERAPY
     Dosage: 60 MILLIGRAM
     Route: 048
  9. HYDROMORPHONE [Suspect]
     Active Substance: HYDROMORPHONE
     Indication: CANCER PAIN
     Dosage: 2 MILLIGRAM
     Route: 042
  10. TOPROL XL [Concomitant]
     Active Substance: METOPROLOL SUCCINATE
     Indication: HYPERTENSION
     Dosage: UNK
     Route: 065
  11. FENTANYL. [Suspect]
     Active Substance: FENTANYL
     Indication: ANALGESIC INTERVENTION SUPPORTIVE THERAPY
     Dosage: 12 MICROGRAM, QH
     Route: 062
  12. METHADONE [Suspect]
     Active Substance: METHADONE HYDROCHLORIDE
     Dosage: 25 MILLIGRAM
     Route: 048
  13. OXYCODONE [Suspect]
     Active Substance: OXYCODONE
     Dosage: 60 MILLIGRAM
     Route: 048
  14. DEXTROSE. [Concomitant]
     Active Substance: DEXTROSE
     Indication: VEHICLE SOLUTION USE
     Dosage: 100 MILLILITER,THE STANDARD CONCENTRATION OF THE CONTINUOUS INFUSION OF KETAMINE.......
     Route: 042
  15. FENTANYL. [Suspect]
     Active Substance: FENTANYL
     Indication: CANCER PAIN
  16. METHADONE [Suspect]
     Active Substance: METHADONE HYDROCHLORIDE
     Indication: ANALGESIC INTERVENTION SUPPORTIVE THERAPY
     Dosage: 30 MILLIGRAM
     Route: 048
  17. METHADONE [Suspect]
     Active Substance: METHADONE HYDROCHLORIDE
     Indication: CANCER PAIN
     Dosage: 60 MILLIGRAM
     Route: 048
  18. KETALAR [Concomitant]
     Active Substance: KETAMINE HYDROCHLORIDE
     Indication: CANCER PAIN
     Dosage: 100 MILLIGRAM, THE STANDARD CONCENTRATION OF THE CONTINUOUS INFUSION OF KETAMINE.......
     Route: 042

REACTIONS (7)
  - Drug dependence [Recovering/Resolving]
  - Constipation [Recovering/Resolving]
  - Acute kidney injury [Unknown]
  - Nausea [Recovering/Resolving]
  - Lethargy [Recovering/Resolving]
  - Urinary retention [Recovering/Resolving]
  - Gastrointestinal haemorrhage [Unknown]
